FAERS Safety Report 5929910-0 (Version None)
Quarter: 2008Q4

REPORT INFORMATION
  Report Type: 
  Country: None (occurrence: None)
  Receive Date: 20081021
  Receipt Date: 20081010
  Transmission Date: 20090506
  Serious: Yes (Death, Hospitalization)
  Sender: FDA-Public Use
  Company Number: 2008BI027202

PATIENT
  Age: 66 Year
  Sex: Female

DRUGS (3)
  1. AVONEX [Suspect]
     Indication: MULTIPLE SCLEROSIS
     Dosage: 30 UG;QW;IM
     Route: 030
     Dates: start: 20040626, end: 20081004
  2. . [Concomitant]
  3. . [Concomitant]

REACTIONS (2)
  - GASTROINTESTINAL INFECTION [None]
  - PYREXIA [None]
